FAERS Safety Report 26144747 (Version 1)
Quarter: 2025Q4

REPORT INFORMATION
  Report Type: Spontaneous
  Country: AU (occurrence: AU)
  Receive Date: 20251211
  Receipt Date: 20251211
  Transmission Date: 20260117
  Serious: Yes (Other)
  Sender: MYLAN
  Company Number: AU-MYLANLABS-2025M1104082

PATIENT
  Age: 83 Year
  Sex: Female

DRUGS (36)
  1. RIVASTIGMINE [Interacting]
     Active Substance: RIVASTIGMINE
     Indication: Dementia
     Dosage: 9.5 MILLIGRAM, QD
     Dates: start: 201804
  2. RIVASTIGMINE [Interacting]
     Active Substance: RIVASTIGMINE
     Dosage: 9.5 MILLIGRAM, QD
     Route: 065
     Dates: start: 201804
  3. RIVASTIGMINE [Interacting]
     Active Substance: RIVASTIGMINE
     Dosage: 9.5 MILLIGRAM, QD
     Route: 065
     Dates: start: 201804
  4. RIVASTIGMINE [Interacting]
     Active Substance: RIVASTIGMINE
     Dosage: 9.5 MILLIGRAM, QD
     Dates: start: 201804
  5. SUCCINYLCHOLINE [Interacting]
     Active Substance: SUCCINYLCHOLINE
     Indication: Anaesthesia procedure
     Dosage: UNK
  6. SUCCINYLCHOLINE [Interacting]
     Active Substance: SUCCINYLCHOLINE
     Dosage: UNK
     Route: 065
  7. SUCCINYLCHOLINE [Interacting]
     Active Substance: SUCCINYLCHOLINE
     Dosage: UNK
     Route: 065
  8. SUCCINYLCHOLINE [Interacting]
     Active Substance: SUCCINYLCHOLINE
     Dosage: UNK
  9. THIOPENTAL SODIUM [Concomitant]
     Active Substance: THIOPENTAL SODIUM
     Indication: Anaesthesia procedure
     Dosage: UNK
  10. THIOPENTAL SODIUM [Concomitant]
     Active Substance: THIOPENTAL SODIUM
     Dosage: UNK
     Route: 065
  11. THIOPENTAL SODIUM [Concomitant]
     Active Substance: THIOPENTAL SODIUM
     Dosage: UNK
     Route: 065
  12. THIOPENTAL SODIUM [Concomitant]
     Active Substance: THIOPENTAL SODIUM
     Dosage: UNK
  13. DULOXETINE [Concomitant]
     Active Substance: DULOXETINE
     Indication: Depression
     Dosage: 60 MILLIGRAM
  14. DULOXETINE [Concomitant]
     Active Substance: DULOXETINE
     Dosage: 60 MILLIGRAM
     Route: 065
  15. DULOXETINE [Concomitant]
     Active Substance: DULOXETINE
     Dosage: 60 MILLIGRAM
     Route: 065
  16. DULOXETINE [Concomitant]
     Active Substance: DULOXETINE
     Dosage: 60 MILLIGRAM
  17. QUETIAPINE [Concomitant]
     Active Substance: QUETIAPINE
     Indication: Depression
     Dosage: 250 MILLIGRAM
  18. QUETIAPINE [Concomitant]
     Active Substance: QUETIAPINE
     Dosage: 250 MILLIGRAM
     Route: 065
  19. QUETIAPINE [Concomitant]
     Active Substance: QUETIAPINE
     Dosage: 250 MILLIGRAM
     Route: 065
  20. QUETIAPINE [Concomitant]
     Active Substance: QUETIAPINE
     Dosage: 250 MILLIGRAM
  21. LITHIUM [Concomitant]
     Active Substance: LITHIUM
     Indication: Depression
     Dosage: 375 MILLIGRAM
  22. LITHIUM [Concomitant]
     Active Substance: LITHIUM
     Dosage: 375 MILLIGRAM
     Route: 065
  23. LITHIUM [Concomitant]
     Active Substance: LITHIUM
     Dosage: 375 MILLIGRAM
     Route: 065
  24. LITHIUM [Concomitant]
     Active Substance: LITHIUM
     Dosage: 375 MILLIGRAM
  25. SEVOFLURANE [Concomitant]
     Active Substance: SEVOFLURANE
     Indication: Anaesthesia procedure
     Dosage: UNK
  26. SEVOFLURANE [Concomitant]
     Active Substance: SEVOFLURANE
     Dosage: UNK
     Route: 065
  27. SEVOFLURANE [Concomitant]
     Active Substance: SEVOFLURANE
     Dosage: UNK
     Route: 065
  28. SEVOFLURANE [Concomitant]
     Active Substance: SEVOFLURANE
     Dosage: UNK
  29. ROCURONIUM [Concomitant]
     Active Substance: ROCURONIUM BROMIDE
     Indication: Anaesthesia procedure
     Dosage: 30 MILLIGRAM
  30. ROCURONIUM [Concomitant]
     Active Substance: ROCURONIUM BROMIDE
     Dosage: 30 MILLIGRAM
     Route: 065
  31. ROCURONIUM [Concomitant]
     Active Substance: ROCURONIUM BROMIDE
     Dosage: 30 MILLIGRAM
     Route: 065
  32. ROCURONIUM [Concomitant]
     Active Substance: ROCURONIUM BROMIDE
     Dosage: 30 MILLIGRAM
  33. SUGAMMADEX [Concomitant]
     Active Substance: SUGAMMADEX
     Indication: Anaesthesia procedure
     Dosage: 200 MILLIGRAM
  34. SUGAMMADEX [Concomitant]
     Active Substance: SUGAMMADEX
     Dosage: 200 MILLIGRAM
     Route: 065
  35. SUGAMMADEX [Concomitant]
     Active Substance: SUGAMMADEX
     Dosage: 200 MILLIGRAM
     Route: 065
  36. SUGAMMADEX [Concomitant]
     Active Substance: SUGAMMADEX
     Dosage: 200 MILLIGRAM

REACTIONS (4)
  - Paralysis [Recovered/Resolved]
  - Apnoea [Unknown]
  - Labelled drug-drug interaction medication error [Unknown]
  - Unmasking of previously unidentified disease [Unknown]
